FAERS Safety Report 9444064 (Version 1)
Quarter: 2013Q3

REPORT INFORMATION
  Report Type: Spontaneous
  Country: US (occurrence: None)
  Receive Date: 20130806
  Receipt Date: 20130806
  Transmission Date: 20140515
  Serious: No
  Sender: FDA-Public Use
  Company Number: None

PATIENT
  Age: 56 Year
  Sex: Female

DRUGS (1)
  1. ENBREL 50 MG AMGEN [Suspect]
     Indication: PSORIASIS
     Dosage: 50 MG  BIW  SQ
     Route: 058
     Dates: start: 20130729, end: 20130802

REACTIONS (3)
  - Hypersensitivity [None]
  - Rash pruritic [None]
  - Dyspnoea [None]
